FAERS Safety Report 9192849 (Version 1)
Quarter: 2013Q1

REPORT INFORMATION
  Report Type: Spontaneous
  Country: US (occurrence: None)
  Receive Date: 20130325
  Receipt Date: 20130325
  Transmission Date: 20140127
  Serious: Yes (Hospitalization)
  Sender: FDA-Public Use
  Company Number: None

PATIENT
  Age: 77 Year
  Sex: Male

DRUGS (3)
  1. AZITHROMYCIN [Suspect]
     Indication: INFECTION
     Route: 042
     Dates: start: 20130110, end: 20130111
  2. AZITHROMYCIN [Suspect]
     Indication: PYREXIA
     Route: 042
     Dates: start: 20130110, end: 20130111
  3. LISINOPRIL 5 MG [Suspect]
     Route: 048
     Dates: start: 20010122, end: 20130111

REACTIONS (1)
  - Angioedema [None]
